FAERS Safety Report 13591286 (Version 1)
Quarter: 2017Q2

REPORT INFORMATION
  Report Type: Spontaneous
  Country: US (occurrence: US)
  Receive Date: 20170529
  Receipt Date: 20170529
  Transmission Date: 20170830
  Serious: No
  Sender: FDA-Public Use
  Company Number: US-PFIZER INC-2017199592

PATIENT
  Age: 19 Year
  Sex: Male
  Weight: 42.18 kg

DRUGS (24)
  1. GENOTROPIN [Suspect]
     Active Substance: SOMATROPIN
     Indication: HYPOGONADISM
  2. ADVAIR HFA [Concomitant]
     Active Substance: FLUTICASONE PROPIONATE\SALMETEROL XINAFOATE
     Dosage: 2 DF, 2X/DAY [FLUTICASONE-115]/[SALMETEROL-21]MCG/ACT
     Route: 055
  3. GENOTROPIN [Suspect]
     Active Substance: SOMATROPIN
     Indication: BODY HEIGHT BELOW NORMAL
     Dosage: 1.8 MG, 1X/DAY (NIGHTLY (AT BEDTIME))
     Route: 058
  4. CORTEF [Concomitant]
     Active Substance: HYDROCORTISONE
     Indication: VOMITING
     Dosage: 15 MG, UNK (EVERY 8 HOURS)
  5. ADDERALL [Concomitant]
     Active Substance: AMPHETAMINE ASPARTATE\AMPHETAMINE SULFATE\DEXTROAMPHETAMINE SACCHARATE\DEXTROAMPHETAMINE SULFATE
     Dosage: 30 MG, 1X/DAY (EVERY MORNING)
     Route: 048
  6. GENOTROPIN [Suspect]
     Active Substance: SOMATROPIN
     Indication: GROWTH FAILURE
     Dosage: INJECT 2MG SUBCUTANEOUS EVERY NIGHT AT BEDTIME
     Route: 058
  7. GENOTROPIN [Suspect]
     Active Substance: SOMATROPIN
     Indication: SECONDARY ADRENOCORTICAL INSUFFICIENCY
  8. ALBUTEROL SULFATE. [Concomitant]
     Active Substance: ALBUTEROL SULFATE
     Dosage: UNK, AS NEEDED (1 VIAL BID PRN)
  9. CORTEF [Concomitant]
     Active Substance: HYDROCORTISONE
     Indication: PYREXIA
     Dosage: 5 MG, 2X/DAY (8 MG/M2/DAY)
     Route: 048
     Dates: start: 201611
  10. SINGULAIR [Concomitant]
     Active Substance: MONTELUKAST SODIUM
     Dosage: 4 MG, DAILY
  11. SODIUM CHLORIDE. [Concomitant]
     Active Substance: SODIUM CHLORIDE
     Dosage: UNK
  12. GENOTROPIN [Suspect]
     Active Substance: SOMATROPIN
     Indication: DWARFISM
  13. MIRALAX [Concomitant]
     Active Substance: POLYETHYLENE GLYCOL 3350
     Dosage: 1 DF, DAILY
     Route: 048
  14. SINGULAIR [Concomitant]
     Active Substance: MONTELUKAST SODIUM
     Dosage: 5 MG, 1X/DAY (EVERY EVENING)
     Route: 048
  15. GENOTROPIN [Suspect]
     Active Substance: SOMATROPIN
     Indication: GROWTH HORMONE DEFICIENCY
     Dosage: 2 MG, DAILY (0.3 MG/KG/WEEK)
     Dates: start: 20161019
  16. SYMBICORT [Concomitant]
     Active Substance: BUDESONIDE\FORMOTEROL FUMARATE DIHYDRATE
     Indication: ASTHMA
     Dosage: [BUDESONIDE160]/ [FORMOTEROL FUMARATE4.5], 2 SPRAYS IN THE MORNING AND 2 AT NIGHT
  17. POLYETHYLENE [Concomitant]
     Active Substance: HIGH DENSITY POLYETHYLENE
     Indication: CONSTIPATION
     Dosage: 1 CAP FULL 3 TIMES A WEEK WITH 8 OF WATER
  18. HYDROCORTISONE. [Concomitant]
     Active Substance: HYDROCORTISONE
     Indication: PROPHYLAXIS
     Dosage: 5MG, 2 TABLETS ARE DISOLVED INTO WATER AND GIVEN THROUGH G-TUBE EVERY NIGHT
  19. RISPERIDONE. [Concomitant]
     Active Substance: RISPERIDONE
     Indication: SLEEP DISORDER
  20. CORTEF [Concomitant]
     Active Substance: HYDROCORTISONE
     Indication: INJURY
  21. RISPERDAL [Concomitant]
     Active Substance: RISPERIDONE
     Dosage: 1 ML, 1X/DAY (EVERY EVENING)
     Route: 048
  22. MONTELUKAST [Concomitant]
     Active Substance: MONTELUKAST SODIUM
     Indication: ASTHMA
     Dosage: 10MG, 1 TABLET A NIGHT DISOLVED IN G-TUBE
  23. ALBUTEROL SULFATE. [Concomitant]
     Active Substance: ALBUTEROL SULFATE
     Indication: ASTHMA
     Dosage: 2.5MG/3ML, ABOUT ONCE A WEEK
  24. RISPERIDONE. [Concomitant]
     Active Substance: RISPERIDONE
     Indication: HYPERTENSION
     Dosage: 1MG/1.5MLS EVERY NIGHT

REACTIONS (2)
  - Drug effect incomplete [Unknown]
  - Treatment noncompliance [Unknown]
